FAERS Safety Report 7085074-4 (Version None)
Quarter: 2010Q4

REPORT INFORMATION
  Report Type: 
  Country: None (occurrence: None)
  Receive Date: 20101026
  Receipt Date: 20101020
  Transmission Date: 20110411
  Serious: Yes (Hospitalization)
  Sender: FDA-Public Use
  Company Number: 2010SP056272

PATIENT
  Age: 40 Year
  Sex: Female

DRUGS (2)
  1. MARVELON 21 (DESOGESTREL/ETHINYLESTRADIOL/00570801/) [Suspect]
     Indication: MENORRHAGIA
     Dosage: 1 DF; QD; PO
     Route: 048
     Dates: start: 20101001
  2. NORETHISTERONE/ETHINYL ESTRADIOL [Concomitant]

REACTIONS (2)
  - PULMONARY EMBOLISM [None]
  - RESPIRATORY ARREST [None]
